FAERS Safety Report 18665049 (Version 3)
Quarter: 2022Q1

REPORT INFORMATION
  Report Type: Report from Study
  Country: US (occurrence: US)
  Receive Date: 20201225
  Receipt Date: 20220208
  Transmission Date: 20220423
  Serious: Yes (Hospitalization, Other)
  Sender: FDA-Public Use
  Company Number: US-SHIRE-US202033118

PATIENT
  Age: 68 Year
  Sex: Female
  Weight: 81.6 kg

DRUGS (43)
  1. HUMAN IMMUNOGLOBULIN G [Suspect]
     Active Substance: HUMAN IMMUNOGLOBULIN G
     Indication: Immunodeficiency common variable
     Dosage: 30 GRAM, Q3WEEKS
     Route: 042
     Dates: start: 20190916
  2. HUMAN IMMUNOGLOBULIN G [Suspect]
     Active Substance: HUMAN IMMUNOGLOBULIN G
     Dosage: 30 GRAM, Q3WEEKS
     Route: 042
     Dates: start: 20090930
  3. FLUAD NOS [Concomitant]
     Active Substance: INFLUENZA VIRUS VACCINE
  4. NORCO [Concomitant]
     Active Substance: ACETAMINOPHEN\HYDROCODONE BITARTRATE
  5. VENTOLIN HFA [Concomitant]
     Active Substance: ALBUTEROL SULFATE
  6. GABAPENTIN [Concomitant]
     Active Substance: GABAPENTIN
  7. NYSTATIN [Concomitant]
     Active Substance: NYSTATIN
  8. WIXELA INHUB [Concomitant]
     Active Substance: FLUTICASONE PROPIONATE\SALMETEROL XINAFOATE
  9. BIOFREEZE [Concomitant]
     Active Substance: MENTHOL
  10. CANNABIDIOL [Concomitant]
     Active Substance: CANNABIDIOL
  11. ACETAMINOPHEN [Concomitant]
     Active Substance: ACETAMINOPHEN
  12. DIPHENHYDRAMINE [Concomitant]
     Active Substance: DIPHENHYDRAMINE
  13. EPINEPHRINE [Concomitant]
     Active Substance: EPINEPHRINE
  14. LIDOCAINE [Concomitant]
     Active Substance: LIDOCAINE
  15. SODIUM CHLORIDE [Concomitant]
     Active Substance: SODIUM CHLORIDE
  16. FOSAMAX [Concomitant]
     Active Substance: ALENDRONATE SODIUM
  17. PREMPRO [Concomitant]
     Active Substance: ESTROGENS, CONJUGATED\MEDROXYPROGESTERONE ACETATE
  18. VITAMINS [Concomitant]
     Active Substance: VITAMINS
  19. LASIX [Concomitant]
     Active Substance: FUROSEMIDE
  20. ATORVASTATIN [Concomitant]
     Active Substance: ATORVASTATIN
  21. OMEPRAZOLE [Concomitant]
     Active Substance: OMEPRAZOLE
  22. COMBIVENT [Concomitant]
     Active Substance: ALBUTEROL SULFATE\IPRATROPIUM BROMIDE
  23. LOSARTAN [Concomitant]
     Active Substance: LOSARTAN
  24. CALCIUM PLUS D3 [Concomitant]
  25. MAGNESIUM [Concomitant]
     Active Substance: MAGNESIUM
  26. METFORMIN [Concomitant]
     Active Substance: METFORMIN HYDROCHLORIDE
  27. IPRATROPIUM [Concomitant]
     Active Substance: IPRATROPIUM
  28. FAMOTIDINE [Concomitant]
     Active Substance: FAMOTIDINE
  29. PREDNISONE [Concomitant]
     Active Substance: PREDNISONE
  30. VERAPAMIL [Concomitant]
     Active Substance: VERAPAMIL HYDROCHLORIDE
  31. KLOR-CON [Concomitant]
     Active Substance: POTASSIUM CHLORIDE
  32. METOLAZONE [Concomitant]
     Active Substance: METOLAZONE
  33. AMILORIDE [Concomitant]
     Active Substance: AMILORIDE
  34. JARDIANCE [Concomitant]
     Active Substance: EMPAGLIFLOZIN
  35. CLOPIDOGREL BISULFATE [Concomitant]
     Active Substance: CLOPIDOGREL BISULFATE
  36. FLUBLOK QUADRIVALENT NOS [Concomitant]
     Active Substance: INFLUENZA VIRUS VACCINE
  37. TYLENOL [Concomitant]
     Active Substance: ACETAMINOPHEN
  38. ALBUTEROL [Concomitant]
     Active Substance: ALBUTEROL
  39. SHINGRIX [Concomitant]
     Active Substance: RECOMBINANT VARICELLA ZOSTER VIRUS (VZV) GLYCOPROTEIN E
  40. ASPIRIN [Concomitant]
     Active Substance: ASPIRIN
  41. BIOFREEZE [Concomitant]
     Active Substance: MENTHOL
  42. FOSAMAX [Concomitant]
     Active Substance: ALENDRONATE SODIUM
  43. COMBIVENT RESPIMAT [Concomitant]
     Active Substance: ALBUTEROL SULFATE\IPRATROPIUM BROMIDE

REACTIONS (3)
  - Pneumonia [Unknown]
  - Arthropathy [Unknown]
  - Cataract [Unknown]

NARRATIVE: CASE EVENT DATE: 20220111
